FAERS Safety Report 18576441 (Version 1)
Quarter: 2020Q4

REPORT INFORMATION
  Report Type: Spontaneous
  Country: TW (occurrence: TW)
  Receive Date: 20201203
  Receipt Date: 20201203
  Transmission Date: 20210114
  Serious: No
  Sender: FDA-Public Use
  Company Number: TW-LUPIN PHARMACEUTICALS INC.-2020-09390

PATIENT
  Age: 26 Year
  Sex: Female

DRUGS (3)
  1. CEFAZOLINE [Suspect]
     Active Substance: CEFAZOLIN SODIUM
     Indication: EVIDENCE BASED TREATMENT
     Dosage: 1000 MILLIGRAM, TID
     Route: 042
  2. VALACYCLOVIR [Suspect]
     Active Substance: VALACYCLOVIR HYDROCHLORIDE
     Indication: ORAL HERPES
     Dosage: UNK
     Route: 065
  3. OSELTAMIVIR [Suspect]
     Active Substance: OSELTAMIVIR
     Indication: EVIDENCE BASED TREATMENT
     Dosage: 75 MILLIGRAM, BID
     Route: 048

REACTIONS (3)
  - Normal newborn [Unknown]
  - Exposure during pregnancy [Unknown]
  - Drug ineffective [Unknown]
